FAERS Safety Report 22243626 (Version 1)
Quarter: 2023Q2

REPORT INFORMATION
  Report Type: Report from Study
  Country: US (occurrence: US)
  Receive Date: 20230424
  Receipt Date: 20230424
  Transmission Date: 20230722
  Serious: Yes (Hospitalization, Other)
  Sender: FDA-Public Use
  Company Number: US-JNJFOC-20230349753

PATIENT
  Age: 58 Year
  Sex: Female

DRUGS (1)
  1. MACITENTAN [Suspect]
     Active Substance: MACITENTAN
     Indication: Pulmonary arterial hypertension
     Route: 048
     Dates: start: 202302

REACTIONS (5)
  - Vomiting [Unknown]
  - Dyspnoea [Unknown]
  - Gait disturbance [Unknown]
  - Weight increased [Unknown]
  - Adverse event [Unknown]

NARRATIVE: CASE EVENT DATE: 20230301
